FAERS Safety Report 20441491 (Version 1)
Quarter: 2022Q1

REPORT INFORMATION
  Report Type: Report from Study
  Country: DE (occurrence: DE)
  Receive Date: 20220208
  Receipt Date: 20220208
  Transmission Date: 20220423
  Serious: Yes (Other)
  Sender: FDA-Public Use
  Company Number: DE-MLMSERVICE-20220106-3303230-1

PATIENT
  Age: 73 Year
  Sex: Male

DRUGS (18)
  1. DOCETAXEL [Suspect]
     Active Substance: DOCETAXEL
     Indication: Leiomyosarcoma metastatic
     Dosage: PART OF COMBINED THERAPY
     Route: 065
  2. DOCETAXEL [Suspect]
     Active Substance: DOCETAXEL
     Indication: Metastases to lung
  3. DOCETAXEL [Suspect]
     Active Substance: DOCETAXEL
     Indication: Metastases to liver
  4. DOCETAXEL [Suspect]
     Active Substance: DOCETAXEL
     Indication: Leiomyosarcoma metastatic
  5. DOXORUBICIN [Suspect]
     Active Substance: DOXORUBICIN
     Indication: Leiomyosarcoma metastatic
     Dosage: UNK
     Route: 065
  6. GEMCITABINE [Suspect]
     Active Substance: GEMCITABINE
     Indication: Pancreatic carcinoma
     Dosage: 1000 MILLIGRAM/SQ. METER
     Route: 042
  7. GEMCITABINE [Suspect]
     Active Substance: GEMCITABINE
     Indication: Metastases to lung
     Dosage: 900 MILLIGRAM/SQ. METER, CYCLICAL
     Route: 042
  8. GEMCITABINE [Suspect]
     Active Substance: GEMCITABINE
     Indication: Metastases to liver
  9. GEMCITABINE [Suspect]
     Active Substance: GEMCITABINE
     Indication: Leiomyosarcoma metastatic
  10. DACARBAZINE [Suspect]
     Active Substance: DACARBAZINE
     Indication: Pancreatic carcinoma
     Dosage: UNK
     Route: 065
  11. DACARBAZINE [Suspect]
     Active Substance: DACARBAZINE
     Indication: Metastases to lung
  12. DACARBAZINE [Suspect]
     Active Substance: DACARBAZINE
     Indication: Metastases to liver
  13. DACARBAZINE [Suspect]
     Active Substance: DACARBAZINE
     Indication: Leiomyosarcoma metastatic
  14. PAZOPANIB [Suspect]
     Active Substance: PAZOPANIB
     Indication: Pancreatic carcinoma
     Dosage: UNK
     Route: 065
  15. PAZOPANIB [Suspect]
     Active Substance: PAZOPANIB
     Indication: Metastases to lung
  16. PAZOPANIB [Suspect]
     Active Substance: PAZOPANIB
     Indication: Metastases to liver
  17. PAZOPANIB [Suspect]
     Active Substance: PAZOPANIB
     Indication: Leiomyosarcoma metastatic
  18. OLARATUMAB [Suspect]
     Active Substance: OLARATUMAB
     Indication: Leiomyosarcoma metastatic
     Dosage: UNK
     Route: 065

REACTIONS (5)
  - Neutropenia [Recovered/Resolved]
  - Haematotoxicity [Recovered/Resolved]
  - Leukopenia [Recovered/Resolved]
  - Drug ineffective [Unknown]
  - Off label use [Unknown]
